FAERS Safety Report 16943635 (Version 2)
Quarter: 2019Q4

REPORT INFORMATION
  Report Type: Report from Study
  Country: EC (occurrence: EC)
  Receive Date: 20191022
  Receipt Date: 20191107
  Transmission Date: 20200122
  Serious: Yes (Other)
  Sender: FDA-Public Use
  Company Number: EC-EMD SERONO-9122901

PATIENT
  Sex: Female

DRUGS (1)
  1. SAIZEN [Suspect]
     Active Substance: SOMATROPIN
     Indication: GROWTH HORMONE DEFICIENCY
     Route: 058
     Dates: start: 20190201, end: 2019

REACTIONS (4)
  - Arthralgia [Unknown]
  - Exostosis [Recovering/Resolving]
  - Feeling hot [Unknown]
  - Limb mass [Unknown]

NARRATIVE: CASE EVENT DATE: 2019
